FAERS Safety Report 9440979 (Version 2)
Quarter: 2013Q3

REPORT INFORMATION
  Report Type: Spontaneous
  Country: US (occurrence: None)
  Receive Date: 20130801
  Receipt Date: 20130822
  Transmission Date: 20140515
  Serious: Yes (Hospitalization)
  Sender: FDA-Public Use
  Company Number: JPI-P-034075

PATIENT
  Age: 69 Year
  Sex: Male

DRUGS (8)
  1. XYREM [Suspect]
     Indication: NARCOLEPSY
     Route: 048
     Dates: start: 20130116, end: 2013
  2. SITAGLIPTIN PHOSPHATE [Concomitant]
  3. METFORMIN [Concomitant]
  4. METOPROLOL [Concomitant]
  5. DICYCLOMINE [Concomitant]
  6. NITROGLYCERIN [Concomitant]
  7. GLUCOSAMINE [Concomitant]
  8. ATORVASTATIN CALCIUM [Concomitant]

REACTIONS (2)
  - Myocardial infarction [None]
  - Drug dose omission [None]
